FAERS Safety Report 10735922 (Version 1)
Quarter: 2015Q1

REPORT INFORMATION
  Report Type: Spontaneous
  Country: PT (occurrence: None)
  Receive Date: 20150121
  Receipt Date: 20150121
  Transmission Date: 20150721
  Serious: Yes (Other)
  Sender: FDA-Public Use
  Company Number: 2677359

PATIENT
  Age: 50 Year
  Sex: Female
  Weight: 58 kg

DRUGS (4)
  1. DOCETAXEL. [Suspect]
     Active Substance: DOCETAXEL
     Indication: BREAST CANCER
     Dosage: 160 MG MILLIGRAM (S) , CYCLICAL, INTRAVENOUS
     Route: 042
     Dates: start: 20141014, end: 20141104
  2. ONDANSETRON [Concomitant]
     Active Substance: ONDANSETRON
  3. SODIUM CHLORIDE. [Concomitant]
     Active Substance: SODIUM CHLORIDE
  4. DEXAMETHASONE. [Concomitant]
     Active Substance: DEXAMETHASONE

REACTIONS (7)
  - Oedema peripheral [None]
  - Renal pain [None]
  - Toxic skin eruption [None]
  - Erythema [None]
  - Gait disturbance [None]
  - Face oedema [None]
  - Flushing [None]

NARRATIVE: CASE EVENT DATE: 20141014
